FAERS Safety Report 9405227 (Version 1)
Quarter: 2013Q3

REPORT INFORMATION
  Report Type: Spontaneous
  Country: AU (occurrence: AU)
  Receive Date: 20130717
  Receipt Date: 20130717
  Transmission Date: 20140515
  Serious: Yes (Other)
  Sender: FDA-Public Use
  Company Number: PHHY2013AU074861

PATIENT
  Sex: Female

DRUGS (18)
  1. METARAMINOL [Suspect]
  2. FENTANYL [Suspect]
  3. MIDAZOLAM [Suspect]
  4. ONDANSETRON HYDROCHLORIDE [Suspect]
  5. PARACETAMOL [Suspect]
  6. VANCOMYCIN HYDROCHLORIDE [Suspect]
  7. AMITRIPTYLINE HYDROCHLORIDE [Concomitant]
  8. VECURONIUM BROMIDE [Suspect]
  9. GENTAMICIN SULPHATE [Suspect]
  10. ATENOLOL [Concomitant]
  11. ATORVASTATIN [Concomitant]
  12. DIAZEPAM [Concomitant]
  13. ESCITALOPRAM [Concomitant]
  14. FOLIC ACID [Concomitant]
  15. MORPHINE [Concomitant]
  16. PROPOFOL [Concomitant]
  17. SUGAMMADEX [Concomitant]
  18. THYROXINE SODIUM [Concomitant]

REACTIONS (1)
  - Liver injury [Unknown]
